FAERS Safety Report 11394649 (Version 1)
Quarter: 2015Q3

REPORT INFORMATION
  Report Type: Spontaneous
  Country: US (occurrence: None)
  Receive Date: 20150817
  Receipt Date: 20150817
  Transmission Date: 20151125
  Serious: Yes (Disabling)
  Sender: FDA-Public Use
  Company Number: None

PATIENT
  Age: 42 Year
  Sex: Female
  Weight: 63.5 kg

DRUGS (1)
  1. LEVOFLOXACIN. [Suspect]
     Active Substance: LEVOFLOXACIN
     Indication: BRONCHITIS
     Route: 048
     Dates: start: 20150728, end: 20150730

REACTIONS (4)
  - Tendonitis [None]
  - Neuropathy peripheral [None]
  - Impaired work ability [None]
  - Walking aid user [None]

NARRATIVE: CASE EVENT DATE: 20150731
